FAERS Safety Report 5434021-7 (Version None)
Quarter: 2007Q3

REPORT INFORMATION
  Report Type: 
  Country: None (occurrence: None)
  Receive Date: 20070831
  Receipt Date: 20070716
  Transmission Date: 20080115
  Serious: No
  Sender: FDA-Public Use
  Company Number: A0663947A

PATIENT
  Age: 60 Year
  Sex: Female

DRUGS (2)
  1. ALLI [Suspect]
     Dates: start: 20070709, end: 20070713
  2. NORVASC [Concomitant]

REACTIONS (5)
  - ABDOMINAL PAIN UPPER [None]
  - CHEST PAIN [None]
  - DIZZINESS [None]
  - DYSPNOEA [None]
  - HEADACHE [None]
